FAERS Safety Report 18170209 (Version 1)
Quarter: 2020Q3

REPORT INFORMATION
  Report Type: Spontaneous
  Country: CN (occurrence: CN)
  Receive Date: 20200819
  Receipt Date: 20200819
  Transmission Date: 20201103
  Serious: Yes (Other)
  Sender: FDA-Public Use
  Company Number: CN-ROCHE-2660982

PATIENT
  Age: 58 Year
  Sex: Female

DRUGS (17)
  1. PACLITAXEL ALBUMIN [Concomitant]
     Active Substance: PACLITAXEL
     Indication: HER2 POSITIVE BREAST CANCER
     Dates: start: 20181129
  2. PACLITAXEL ALBUMIN [Concomitant]
     Active Substance: PACLITAXEL
     Dosage: DAY 1, 8
  3. LAPATINIB [Concomitant]
     Active Substance: LAPATINIB
     Indication: HER2 POSITIVE BREAST CANCER
     Route: 048
     Dates: start: 20191011
  4. LAPATINIB [Concomitant]
     Active Substance: LAPATINIB
     Route: 048
     Dates: start: 202004, end: 2020
  5. LAPATINIB [Concomitant]
     Active Substance: LAPATINIB
     Route: 048
     Dates: start: 202001
  6. HERCEPTIN [Suspect]
     Active Substance: TRASTUZUMAB
     Route: 065
     Dates: start: 20181129, end: 20190717
  7. DEXAMETHASONE. [Concomitant]
     Active Substance: DEXAMETHASONE
     Indication: HER2 POSITIVE BREAST CANCER
     Route: 048
     Dates: start: 20200530, end: 20200712
  8. XELODA [Suspect]
     Active Substance: CAPECITABINE
     Indication: HER2 POSITIVE BREAST CANCER
     Route: 048
     Dates: start: 20180718, end: 20180808
  9. GEMCITABINE. [Concomitant]
     Active Substance: GEMCITABINE
     Indication: HER2 POSITIVE BREAST CANCER
     Dates: start: 20180718, end: 20180808
  10. ZOLEDRONIC ACID [Concomitant]
     Active Substance: ZOLEDRONIC ACID
     Indication: HER2 POSITIVE BREAST CANCER
     Dates: start: 201807
  11. PACLITAXEL ALBUMIN [Concomitant]
     Active Substance: PACLITAXEL
     Dosage: DAY 1, 8
  12. HERCEPTIN [Suspect]
     Active Substance: TRASTUZUMAB
     Indication: HER2 POSITIVE BREAST CANCER
     Route: 065
     Dates: start: 20180718, end: 20180808
  13. HERCEPTIN [Suspect]
     Active Substance: TRASTUZUMAB
     Route: 065
     Dates: start: 20200801
  14. GEMCITABINE. [Concomitant]
     Active Substance: GEMCITABINE
     Dates: start: 20180831, end: 20181106
  15. ANASTROZOLE. [Concomitant]
     Active Substance: ANASTROZOLE
     Indication: HER2 POSITIVE BREAST CANCER
     Route: 048
     Dates: start: 20190731, end: 202005
  16. HERCEPTIN [Suspect]
     Active Substance: TRASTUZUMAB
     Route: 065
     Dates: start: 20200529
  17. HERCEPTIN [Suspect]
     Active Substance: TRASTUZUMAB
     Route: 065
     Dates: start: 20180831, end: 20181106

REACTIONS (5)
  - Granulocyte count decreased [Unknown]
  - Diarrhoea [Unknown]
  - Palmar-plantar erythrodysaesthesia syndrome [Unknown]
  - Nausea [Unknown]
  - Vomiting [Unknown]

NARRATIVE: CASE EVENT DATE: 2020
